FAERS Safety Report 16292694 (Version 1)
Quarter: 2019Q2

REPORT INFORMATION
  Report Type: Spontaneous
  Country: US (occurrence: US)
  Receive Date: 20190509
  Receipt Date: 20190509
  Transmission Date: 20190711
  Serious: Yes (Other)
  Sender: FDA-Public Use
  Company Number: US-ELI_LILLY_AND_COMPANY-US201905001281

PATIENT
  Age: 21 Year
  Sex: Female
  Weight: 68 kg

DRUGS (3)
  1. PROZAC [Suspect]
     Active Substance: FLUOXETINE HYDROCHLORIDE
     Indication: SOCIAL ANXIETY DISORDER
     Dosage: 20 MG, DAILY
     Route: 065
     Dates: start: 201901
  2. PROZAC [Interacting]
     Active Substance: FLUOXETINE HYDROCHLORIDE
     Indication: ATTENTION DEFICIT/HYPERACTIVITY DISORDER
  3. VYVANSE [Interacting]
     Active Substance: LISDEXAMFETAMINE DIMESYLATE
     Indication: ATTENTION DEFICIT/HYPERACTIVITY DISORDER
     Dosage: 40 MG, DAILY
     Route: 065
     Dates: start: 201901

REACTIONS (15)
  - Syncope [Recovered/Resolved]
  - Dyspnoea [Recovered/Resolved]
  - Tunnel vision [Recovered/Resolved]
  - Heart rate decreased [Recovered/Resolved]
  - Tinnitus [Recovered/Resolved]
  - Tinnitus [Recovered/Resolved]
  - Panic attack [Recovered/Resolved]
  - Confusional state [Recovered/Resolved]
  - Dizziness [Recovered/Resolved]
  - Drug interaction [Unknown]
  - Pain [Recovered/Resolved]
  - Fall [Recovered/Resolved]
  - Hyperhidrosis [Recovered/Resolved]
  - Tremor [Recovered/Resolved]
  - Dizziness [Recovered/Resolved]

NARRATIVE: CASE EVENT DATE: 20190211
